FAERS Safety Report 19727345 (Version 12)
Quarter: 2023Q2

REPORT INFORMATION
  Report Type: Report from Study
  Country: US (occurrence: US)
  Receive Date: 20210819
  Receipt Date: 20230522
  Transmission Date: 20230721
  Serious: No
  Sender: FDA-Public Use
  Company Number: NVSC2021US183887

PATIENT
  Sex: Female
  Weight: 55.32 kg

DRUGS (8)
  1. TREPROSTINIL [Suspect]
     Active Substance: TREPROSTINIL
     Indication: Pulmonary arterial hypertension
     Dosage: 50 NG/KG/ MIN, CONT (5 MG/ML)
     Route: 058
     Dates: start: 20210308
  2. TREPROSTINIL [Suspect]
     Active Substance: TREPROSTINIL
     Dosage: 50 NG/KG/ MIN, CONT (5 MG/ML)
     Route: 058
  3. TREPROSTINIL [Suspect]
     Active Substance: TREPROSTINIL
     Dosage: 65 NG/KG/ MIN, CONT (10 MG/ML)
     Route: 058
  4. TREPROSTINIL [Suspect]
     Active Substance: TREPROSTINIL
     Dosage: 65 NG/KG/ MIN, CONT
     Route: 058
     Dates: start: 20210308
  5. TREPROSTINIL [Suspect]
     Active Substance: TREPROSTINIL
     Dosage: 71.5 NG/KG/MIN
     Route: 058
  6. AMBRISENTAN [Suspect]
     Active Substance: AMBRISENTAN
     Indication: Product used for unknown indication
     Dosage: UNK
     Route: 065
  7. AMBRISENTAN [Suspect]
     Active Substance: AMBRISENTAN
     Dosage: 1 DOSAGE FORM, QD
     Route: 048
  8. OPSUMIT [Concomitant]
     Active Substance: MACITENTAN
     Indication: Product used for unknown indication
     Dosage: UNK
     Route: 065

REACTIONS (10)
  - Device leakage [Unknown]
  - Abdominal discomfort [Unknown]
  - Injection site pain [Unknown]
  - Injection site irritation [Unknown]
  - Injection site haemorrhage [Unknown]
  - Pain in extremity [Unknown]
  - Dyspnoea [Unknown]
  - Myalgia [Unknown]
  - Headache [Unknown]
  - Product use issue [Unknown]
